FAERS Safety Report 8439782 (Version 5)
Quarter: 2013Q2

REPORT INFORMATION
  Report Type: Spontaneous
  Country: US (occurrence: None)
  Receive Date: 20120222
  Receipt Date: 20130617
  Transmission Date: 20140414
  Serious: Yes (Hospitalization)
  Sender: FDA-Public Use
  Company Number: 2011-0296

PATIENT
  Age: 39 Year
  Sex: Female
  Weight: 95 kg

DRUGS (8)
  1. SOMATULINE DEPOT [Suspect]
     Indication: ACROMEGALY
     Dosage: (1 IN 28 D)
     Route: 058
     Dates: start: 20110130, end: 20110130
  2. NYQUIL [Suspect]
     Indication: NASOPHARYNGITIS
     Dates: start: 20110130
  3. NYQUIL [Suspect]
     Indication: NASOPHARYNGITIS
     Dates: start: 20110130
  4. BISMUTH SUBSALICYLATE [Suspect]
     Indication: ABDOMINAL PAIN UPPER
     Dosage: 1 TBS EVERY HOUR UNTIL 8 DOSES
     Dates: start: 20110130, end: 20110130
  5. BISMUTH SUBSALICYLATE [Suspect]
     Indication: ABDOMINAL PAIN UPPER
     Dosage: 1 TBS EVERY HOUR UNTIL 8 DOSES
     Dates: start: 20110130, end: 20110130
  6. LEVOTHYROXINE SODIUM [Concomitant]
  7. GAS-X (DIMETICONE, ACTIVATED) [Concomitant]
  8. PRILOSEC [Concomitant]

REACTIONS (16)
  - Gallbladder disorder [None]
  - Oropharyngeal pain [None]
  - Nasopharyngitis [None]
  - Abdominal pain [None]
  - Nausea [None]
  - Vomiting [None]
  - Headache [None]
  - Dry eye [None]
  - Injection site pain [None]
  - Diarrhoea [None]
  - Drug ineffective [None]
  - Vision blurred [None]
  - Injection site reaction [None]
  - Injection site pruritus [None]
  - Vision blurred [None]
  - Cholecystitis [None]
